FAERS Safety Report 6278536-0 (Version None)
Quarter: 2009Q3

REPORT INFORMATION
  Report Type: 
  Country: None (occurrence: None)
  Receive Date: 20090722
  Receipt Date: 20080717
  Transmission Date: 20100115
  Serious: No
  Sender: FDA-Public Use
  Company Number: US-BAUSCH-2008BL003135

PATIENT
  Age: 24 Year
  Sex: Male
  Weight: 95 kg

DRUGS (1)
  1. OPCON-A [Suspect]
     Indication: SEASONAL ALLERGY
     Route: 047
     Dates: start: 20080717, end: 20080717

REACTIONS (2)
  - EYE IRRITATION [None]
  - MYDRIASIS [None]
